FAERS Safety Report 5017424-4 (Version None)
Quarter: 2006Q2

REPORT INFORMATION
  Report Type: 
  Country: None (occurrence: None)
  Receive Date: 20060601
  Receipt Date: 20060601
  Transmission Date: 20061013
  Serious: Yes (Other)
  Sender: FDA-Public Use
  Company Number: None

PATIENT
  Sex: Female
  Weight: 74.8435 kg

DRUGS (12)
  1. CARDIZEM [Suspect]
     Indication: HYPERTENSION
     Dosage: 240 MG   Q DAY   PO
     Route: 048
     Dates: start: 20051101
  2. CARDIZEM [Suspect]
     Indication: HYPERTENSION
     Dosage: 240 MG   Q DAY   PO
     Route: 048
     Dates: start: 20060201
  3. ENALAPRIL [Concomitant]
  4. ATENOLOL [Concomitant]
  5. PREMARIN [Concomitant]
  6. LOPID [Concomitant]
  7. POTASSIUM CHLORIDE [Concomitant]
  8. PAXIL [Concomitant]
  9. M.V.I. [Concomitant]
  10. XANAX [Concomitant]
  11. ELAVIL [Concomitant]
  12. DICLOFENAC POTASSIUM [Concomitant]

REACTIONS (2)
  - HYPERSENSITIVITY [None]
  - PHARMACEUTICAL PRODUCT COMPLAINT [None]
